FAERS Safety Report 15954274 (Version 2)
Quarter: 2019Q4

REPORT INFORMATION
  Report Type: Spontaneous
  Country: US (occurrence: US)
  Receive Date: 20190212
  Receipt Date: 20191120
  Transmission Date: 20200122
  Serious: Yes (Other)
  Sender: FDA-Public Use
  Company Number: US-ASTRAZENECA-2019SE15544

PATIENT
  Age: 724 Month
  Sex: Male
  Weight: 81.6 kg

DRUGS (13)
  1. FASENRA [Suspect]
     Active Substance: BENRALIZUMAB
     Indication: ASTHMA
     Route: 058
     Dates: start: 2018, end: 201908
  2. TAMSULOSIN HCL [Concomitant]
     Active Substance: TAMSULOSIN HYDROCHLORIDE
     Route: 048
  3. TRAMADOL HCL [Concomitant]
     Active Substance: TRAMADOL HYDROCHLORIDE
     Route: 048
  4. MULTIPLE VITAMIN [Concomitant]
     Active Substance: VITAMINS
     Dosage: 108 MCG/ACT, AS NEEDED
     Route: 055
  5. SYMBICORT [Suspect]
     Active Substance: BUDESONIDE\FORMOTEROL FUMARATE DIHYDRATE
     Dosage: TWO INHALATION TWO TIMES DAILY
     Route: 055
     Dates: start: 20190709
  6. ZANTAC [Concomitant]
     Active Substance: RANITIDINE HYDROCHLORIDE
     Dosage: ONE BEFORE INFUSIONS
     Route: 048
  7. LEVAQUIN [Concomitant]
     Active Substance: LEVOFLOXACIN
     Route: 048
     Dates: start: 20190814
  8. PROAIR HFA [Concomitant]
     Active Substance: ALBUTEROL SULFATE
     Dosage: 108 MCG/ACT, AS NEEDED
     Route: 055
  9. SPIRIVA [Concomitant]
     Active Substance: TIOTROPIUM BROMIDE MONOHYDRATE
     Dosage: 17 MCG CAPSULE 1 INHALATION DAILY,
     Dates: start: 20190318
  10. NASIN [Concomitant]
     Dosage: 0.05%, 1 SPRAY IN EACH NOSTIL TWO TIMES DAILY
     Route: 045
  11. IBUPROFEN. [Concomitant]
     Active Substance: IBUPROFEN
     Route: 048
  12. MOMETASONE FUROATE. [Concomitant]
     Active Substance: MOMETASONE FUROATE
     Dosage: 200 MCG/ACT AEROSOL, 1 SPRAY IN EACH NOSTIL TWO TIMES DAILY
     Route: 045
  13. MUCINEX [Concomitant]
     Active Substance: GUAIFENESIN
     Dosage: AS NEEDED
     Route: 048

REACTIONS (17)
  - Eye disorder [Unknown]
  - Dizziness [Unknown]
  - Micturition frequency decreased [Unknown]
  - Nausea [Not Recovered/Not Resolved]
  - Temperature intolerance [Unknown]
  - Upper-airway cough syndrome [Unknown]
  - Eye swelling [Unknown]
  - Joint swelling [Unknown]
  - Muscular weakness [Unknown]
  - Hypoaesthesia [Unknown]
  - Arthralgia [Unknown]
  - Ear pain [Unknown]
  - Pruritus [Recovering/Resolving]
  - Deafness [Unknown]
  - Rash [Not Recovered/Not Resolved]
  - Back pain [Unknown]
  - Thirst [Unknown]

NARRATIVE: CASE EVENT DATE: 201812
